FAERS Safety Report 10215110 (Version 1)
Quarter: 2014Q2

REPORT INFORMATION
  Report Type: Spontaneous
  Country: US (occurrence: US)
  Receive Date: 20140603
  Receipt Date: 20140603
  Transmission Date: 20141212
  Serious: No
  Sender: FDA-Public Use
  Company Number: US-PFIZER INC-2014150227

PATIENT
  Age: 42 Year
  Sex: Female
  Weight: 81.18 kg

DRUGS (3)
  1. XANAX [Suspect]
     Indication: ANXIETY DISORDER
     Dosage: 1 MG, 3X/DAY
  2. PROZAC [Concomitant]
     Indication: ANXIETY DISORDER
     Dosage: UNK
  3. WELLBUTRIN [Concomitant]
     Indication: BIPOLAR I DISORDER
     Dosage: UNK
     Dates: start: 201405

REACTIONS (1)
  - Dysphonia [Unknown]
